FAERS Safety Report 21993062 (Version 1)
Quarter: 2023Q1

REPORT INFORMATION
  Report Type: Spontaneous
  Country: US (occurrence: US)
  Receive Date: 20230215
  Receipt Date: 20230215
  Transmission Date: 20230417
  Serious: No
  Sender: FDA-Public Use
  Company Number: US-BoehringerIngelheim-2023-BI-218757

PATIENT
  Sex: Female

DRUGS (4)
  1. JARDIANCE [Suspect]
     Active Substance: EMPAGLIFLOZIN
     Indication: Product used for unknown indication
  2. XELJANZ XR [Concomitant]
     Active Substance: TOFACITINIB CITRATE
     Indication: Product used for unknown indication
     Dosage: 11MG
     Dates: start: 202212
  3. ATORVASTATIN [Concomitant]
     Active Substance: ATORVASTATIN
     Indication: Product used for unknown indication
  4. Airborne OTC [Concomitant]
     Indication: Product used for unknown indication

REACTIONS (5)
  - Sinus disorder [Unknown]
  - Dry skin [Unknown]
  - Foot fracture [Unknown]
  - Pain in extremity [Unknown]
  - Alopecia areata [Unknown]
